FAERS Safety Report 9321075 (Version 1)
Quarter: 2013Q2

REPORT INFORMATION
  Report Type: Spontaneous
  Country: US (occurrence: None)
  Receive Date: 20130530
  Receipt Date: 20130530
  Transmission Date: 20140414
  Serious: Yes (Hospitalization)
  Sender: FDA-Public Use
  Company Number: None

PATIENT
  Age: 69 Year
  Sex: Male
  Weight: 99.5 kg

DRUGS (1)
  1. DIPYRIDAMOLE [Suspect]
     Indication: CARDIAC STRESS TEST
     Route: 042
     Dates: start: 20121004, end: 20121004

REACTIONS (2)
  - Cerebrovascular accident [None]
  - Transient ischaemic attack [None]
